FAERS Safety Report 8894570 (Version 1)
Quarter: 2012Q4

REPORT INFORMATION
  Report Type: 
  Country: US (occurrence: US)
  Receive Date: 20121107
  Receipt Date: 20121107
  Transmission Date: 20130627
  Serious: No
  Sender: FDA-Public Use
  Company Number: US-AMGEN-USASP2011059388

PATIENT
  Age: 62 Year
  Sex: Female

DRUGS (3)
  1. ENBREL [Suspect]
     Indication: RHEUMATOID ARTHRITIS
     Dosage: 50 mg, qwk
     Dates: start: 20110401, end: 20110925
  2. TREXALL [Concomitant]
     Dates: start: 201108
  3. ANTIVIRALS [Concomitant]

REACTIONS (2)
  - Red blood cell sedimentation rate increased [Unknown]
  - Herpes zoster [Recovered/Resolved]
